FAERS Safety Report 5625991-2 (Version None)
Quarter: 2008Q1

REPORT INFORMATION
  Report Type: 
  Country: None (occurrence: None)
  Receive Date: 20080214
  Receipt Date: 20080206
  Transmission Date: 20080703
  Serious: Yes (Hospitalization)
  Sender: FDA-Public Use
  Company Number: PHHO2008AU01363

PATIENT
  Age: 56 Year
  Sex: Female

DRUGS (3)
  1. LETROZOLE [Suspect]
     Indication: NON-SMALL CELL LUNG CANCER
     Dosage: 2.5 MG, QD
     Route: 048
     Dates: start: 20071204
  2. MORPHINE [Suspect]
  3. RAD001 AND LETROZOLE [Suspect]
     Indication: NON-SMALL CELL LUNG CANCER
     Dosage: 10MG, DAILY
     Route: 048
     Dates: start: 20071204

REACTIONS (7)
  - DEHYDRATION [None]
  - LETHARGY [None]
  - NAUSEA [None]
  - PYREXIA [None]
  - RASH ERYTHEMATOUS [None]
  - SEPSIS [None]
  - VOMITING [None]
